FAERS Safety Report 7919454-9 (Version None)
Quarter: 2011Q4

REPORT INFORMATION
  Report Type: 
  Country: None (occurrence: None)
  Receive Date: 20111115
  Receipt Date: 20111031
  Transmission Date: 20120403
  Serious: Yes (Hospitalization)
  Sender: FDA-Public Use
  Company Number: 2011SGN00154

PATIENT
  Age: 80 Year
  Sex: Male
  Weight: 78.5176 kg

DRUGS (11)
  1. CRESTOR [Concomitant]
  2. DIGOXIN (BETA-ACETYLDIGOXIN) [Concomitant]
  3. WELLBUTRIN [Concomitant]
  4. CIPRO [Concomitant]
  5. AGGRENOX [Concomitant]
  6. SGN-35 (CAC10-VCMMAE) INJECTION BRENTUXIMAB [Suspect]
     Indication: HODGKIN'S DISEASE
     Dosage: 1.8 MG/KG, Q21D, INTRAVENOUS
     Route: 042
     Dates: start: 20110706, end: 20110706
  7. FLOMAX [Concomitant]
  8. DOXEPIN HCL [Concomitant]
  9. PROTONIX [Concomitant]
  10. SYNTHROID [Concomitant]
  11. PROSCAR [Concomitant]

REACTIONS (12)
  - ANAEMIA [None]
  - DIASTOLIC DYSFUNCTION [None]
  - PYREXIA [None]
  - TACHYCARDIA [None]
  - URINARY TRACT DISORDER [None]
  - ATRIAL FLUTTER [None]
  - PLEURAL EFFUSION [None]
  - CONDITION AGGRAVATED [None]
  - TESTIS DISCOMFORT [None]
  - LUNG INFILTRATION [None]
  - BLOOD PRESSURE INCREASED [None]
  - FIBRIN D DIMER INCREASED [None]
